FAERS Safety Report 7962422-1 (Version None)
Quarter: 2011Q4

REPORT INFORMATION
  Report Type: 
  Country: None (occurrence: None)
  Receive Date: 20111207
  Receipt Date: 20111202
  Transmission Date: 20120403
  Serious: Yes (Life-Threatening)
  Sender: FDA-Public Use
  Company Number: GB-GLAXOSMITHKLINE-B0766505A

PATIENT
  Age: 66 Year
  Sex: Female

DRUGS (8)
  1. ACETAMINOPHEN [Concomitant]
  2. SIMVASTATIN [Concomitant]
  3. NICOTINE [Suspect]
     Indication: SMOKING CESSATION THERAPY
     Route: 048
     Dates: start: 20111030, end: 20111031
  4. ADCAL [Concomitant]
  5. ASPIRIN [Concomitant]
  6. DITROPAN [Concomitant]
  7. NITROLINGUAL [Concomitant]
  8. VENTOLIN [Concomitant]

REACTIONS (2)
  - CHEST PAIN [None]
  - HEAD DISCOMFORT [None]
